FAERS Safety Report 6402473-1 (Version None)
Quarter: 2009Q4

REPORT INFORMATION
  Report Type: 
  Country: None (occurrence: None)
  Receive Date: 20091015
  Receipt Date: 20091002
  Transmission Date: 20100525
  Serious: Yes (Hospitalization)
  Sender: FDA-Public Use
  Company Number: JP-NOVOPROD-285683

PATIENT
  Age: 56 Year
  Sex: Male
  Weight: 63 kg

DRUGS (2)
  1. NOVORAPID CHU FLEXPEN [Suspect]
     Indication: INSULIN-REQUIRING TYPE 2 DIABETES MELLITUS
     Dosage: 6-10 IU X 3
     Route: 058
     Dates: start: 20090316, end: 20090325
  2. PROTECADIN [Concomitant]
     Indication: PANCREATITIS CHRONIC
     Dosage: UNK TAB, BID
     Route: 048

REACTIONS (2)
  - LOCALISED OEDEMA [None]
  - OEDEMA PERIPHERAL [None]
